FAERS Safety Report 4560173-7 (Version None)
Quarter: 2005Q1

REPORT INFORMATION
  Report Type: 
  Country: None (occurrence: None)
  Receive Date: 20050125
  Receipt Date: 20050113
  Transmission Date: 20050727
  Serious: Yes (Death, Other)
  Sender: FDA-Public Use
  Company Number: 200510149JP

PATIENT
  Age: 59 Year
  Sex: Female
  Weight: 50 kg

DRUGS (3)
  1. TAXOTERE [Suspect]
     Indication: BREAST CANCER RECURRENT
     Route: 041
     Dates: start: 20050105, end: 20050105
  2. EPIRUBICIN [Concomitant]
     Indication: METASTASES TO LIVER
     Route: 013
     Dates: start: 20041228, end: 20041228
  3. PICIBANIL [Concomitant]
     Indication: ASCITES
     Dosage: DOSE: 10EK
     Route: 033
     Dates: start: 20041228, end: 20041228

REACTIONS (5)
  - ANURIA [None]
  - DEPRESSED LEVEL OF CONSCIOUSNESS [None]
  - HYPERKALAEMIA [None]
  - RESPIRATORY ARREST [None]
  - WHITE BLOOD CELL COUNT DECREASED [None]
